FAERS Safety Report 9920860 (Version 3)
Quarter: 2014Q1

REPORT INFORMATION
  Report Type: Report from Study
  Country: CA (occurrence: CA)
  Receive Date: 20140225
  Receipt Date: 20140308
  Transmission Date: 20141002
  Serious: Yes (Hospitalization, Other)
  Sender: FDA-Public Use
  Company Number: CA-ROCHE-1352201

PATIENT
  Sex: Female

DRUGS (16)
  1. AVASTIN [Suspect]
     Indication: GLIOBLASTOMA
     Route: 042
     Dates: start: 20140207, end: 20140207
  2. DECADRON [Suspect]
     Indication: PRODUCT USED FOR UNKNOWN INDICATION
     Route: 065
  3. STATEX (CANADA) [Concomitant]
  4. TYLENOL [Concomitant]
  5. XANAX [Concomitant]
  6. FENTANYL [Concomitant]
  7. FLOVENT [Concomitant]
  8. PROCHLORAZINE [Concomitant]
  9. ALVESCO [Concomitant]
  10. DICETEL [Concomitant]
  11. KENALOG (CANADA) [Concomitant]
  12. XYLOCAINE [Concomitant]
  13. ZOPICLONE [Concomitant]
  14. VOLTAREN [Concomitant]
  15. ACETAMINOPHEN [Concomitant]
     Route: 048
     Dates: start: 20140207
  16. AMITRIPTYLINE [Concomitant]

REACTIONS (16)
  - General physical health deterioration [Unknown]
  - Confusional state [Unknown]
  - Pain [Recovering/Resolving]
  - Abdominal pain [Recovering/Resolving]
  - Platelet count decreased [Unknown]
  - Diarrhoea [Unknown]
  - Epistaxis [Unknown]
  - White blood cell count decreased [Unknown]
  - Red blood cell count decreased [Unknown]
  - Haemoglobin decreased [Unknown]
  - Haematocrit decreased [Unknown]
  - Neutrophil count increased [Unknown]
  - Lymphocyte count decreased [Unknown]
  - Disease progression [Unknown]
  - Mean cell haemoglobin concentration decreased [Unknown]
  - Mean platelet volume increased [Unknown]
